FAERS Safety Report 21922493 (Version 2)
Quarter: 2023Q1

REPORT INFORMATION
  Report Type: Spontaneous
  Country: IN (occurrence: IN)
  Receive Date: 20230128
  Receipt Date: 20230130
  Transmission Date: 20230417
  Serious: Yes (Other)
  Sender: FDA-Public Use
  Company Number: IN-STERISCIENCE B.V.-2023-ST-000253

PATIENT
  Sex: Male

DRUGS (7)
  1. PIPERACILLIN SODIUM\TAZOBACTAM SODIUM [Suspect]
     Active Substance: PIPERACILLIN SODIUM\TAZOBACTAM SODIUM
     Indication: Antibiotic therapy
     Dosage: UNK
  2. LINEZOLID [Suspect]
     Active Substance: LINEZOLID
     Indication: Antibiotic therapy
     Dosage: UNK
  3. DEXAMETHASONE [Suspect]
     Active Substance: DEXAMETHASONE
     Indication: COVID-19
     Dosage: 18 MILLIGRAM, QD
  4. REMDESIVIR [Suspect]
     Active Substance: REMDESIVIR
     Indication: COVID-19
     Dosage: 600 MILLIGRAM
  5. QUETIAPINE [Concomitant]
     Active Substance: QUETIAPINE
     Indication: Bipolar disorder
     Dosage: UNK
  6. QUETIAPINE [Concomitant]
     Active Substance: QUETIAPINE
     Dosage: HIKED
  7. VALPROATE SODIUM [Concomitant]
     Active Substance: VALPROATE SODIUM
     Indication: Bipolar disorder
     Dosage: UNK

REACTIONS (2)
  - Bipolar disorder [None]
  - Disease recurrence [None]
